FAERS Safety Report 7918618-8 (Version None)
Quarter: 2011Q4

REPORT INFORMATION
  Report Type: 
  Country: None (occurrence: None)
  Receive Date: 20111116
  Receipt Date: 20111110
  Transmission Date: 20120403
  Serious: Yes (Hospitalization)
  Sender: FDA-Public Use
  Company Number: US-US-EMD SERONO, INC.-7005632

PATIENT
  Sex: Female
  Weight: 51 kg

DRUGS (2)
  1. REBIF [Suspect]
     Indication: PRODUCT USED FOR UNKNOWN INDICATION
     Route: 058
     Dates: start: 20100301
  2. DROSPIRENONE AND ETHINYL ESTRADIOL [Concomitant]
     Indication: ORAL CONTRACEPTION
     Dates: end: 20110901

REACTIONS (1)
  - APPENDIX DISORDER [None]
